FAERS Safety Report 20590374 (Version 1)
Quarter: 2022Q1

REPORT INFORMATION
  Report Type: Spontaneous
  Country: US (occurrence: None)
  Receive Date: 20220313
  Receipt Date: 20220313
  Transmission Date: 20220424
  Serious: No
  Sender: FDA-Public Use
  Company Number: None

PATIENT
  Age: 62 Year
  Sex: Female
  Weight: 49.5 kg

DRUGS (1)
  1. RETAINE PM [Suspect]
     Active Substance: MINERAL OIL\PETROLATUM
     Indication: Dry eye
     Dosage: OTHER QUANTITY : 1 TEASPOON(S);?FREQUENCY : AT BEDTIME;?
     Route: 047
     Dates: start: 20220312, end: 20220313

REACTIONS (2)
  - Swelling of eyelid [None]
  - Eyelid pain [None]

NARRATIVE: CASE EVENT DATE: 20220312
